FAERS Safety Report 6033260-4 (Version None)
Quarter: 2009Q1

REPORT INFORMATION
  Report Type: 
  Country: None (occurrence: None)
  Receive Date: 20090107
  Receipt Date: 20081222
  Transmission Date: 20090719
  Serious: Yes (Hospitalization)
  Sender: FDA-Public Use
  Company Number: 0901-SPO-VANT-0001

PATIENT
  Age: 73 Year
  Sex: Male

DRUGS (1)
  1. VANTAS [Suspect]
     Indication: PROSTATE CANCER
     Dosage: 50 MG, 1 IN 1 Y, SUB Q. IMPLANT
     Dates: start: 20081219

REACTIONS (3)
  - DYSPNOEA [None]
  - OEDEMA [None]
  - RASH PRURITIC [None]
